FAERS Safety Report 5391703-3 (Version None)
Quarter: 2007Q3

REPORT INFORMATION
  Report Type: 
  Country: None (occurrence: None)
  Receive Date: 20070719
  Receipt Date: 20070713
  Transmission Date: 20080115
  Serious: Yes (Hospitalization)
  Sender: FDA-Public Use
  Company Number: IT-MERCK-0707ITA00025

PATIENT
  Age: 65 Year
  Sex: Female

DRUGS (4)
  1. ZOCOR [Suspect]
     Indication: CARDIOVASCULAR EVENT PROPHYLAXIS
     Route: 048
     Dates: start: 20070605, end: 20070613
  2. TICLOPIDINE HYDROCHLORIDE [Suspect]
     Indication: CEREBRAL ISCHAEMIA
     Route: 048
     Dates: start: 20070612, end: 20070613
  3. DOXAZOSIN MESYLATE [Concomitant]
     Route: 048
  4. CANDESARTAN [Concomitant]
     Route: 065

REACTIONS (1)
  - DRUG ERUPTION [None]
